FAERS Safety Report 15674991 (Version 1)
Quarter: 2018Q4

REPORT INFORMATION
  Report Type: Spontaneous
  Country: DE (occurrence: DE)
  Receive Date: 20181130
  Receipt Date: 20181130
  Transmission Date: 20190205
  Serious: Yes (Congenital Anomaly, Other)
  Sender: FDA-Public Use
  Company Number: DE-AUROBINDO-AUR-APL-2018-057186

PATIENT
  Age: 1 Day
  Sex: Male
  Weight: 1.62 kg

DRUGS (6)
  1. CANDESARTAN. [Suspect]
     Active Substance: CANDESARTAN
     Indication: HYPERTENSION
     Dosage: 8 MILLIGRAM, DAILY
     Route: 064
     Dates: start: 20170708, end: 20171128
  2. BISOPROLOL [Suspect]
     Active Substance: BISOPROLOL
     Indication: HYPERTENSION
     Dosage: 7.5 [MG/D ]/ 2.5-0-5.0 MG/D ()
     Route: 064
  3. NITRENDIPINE [Suspect]
     Active Substance: NITRENDIPINE
     Indication: HYPERTENSION
     Dosage: 10 [MG/D (0-0-1) ] ()
     Route: 064
  4. METHYLDOPA. [Concomitant]
     Active Substance: METHYLDOPA
     Indication: HYPERTENSION
     Dosage: 250 MILLIGRAM, DAILY
     Route: 064
  5. L-THYROXIN                         /00068002/ [Concomitant]
     Active Substance: LEVOTHYROXINE SODIUM
     Indication: PRODUCT USED FOR UNKNOWN INDICATION
     Dosage: 112.5 MICROGRAM, DAILY
     Route: 064
     Dates: start: 20170708, end: 20180228
  6. CLEMIZOLE PENICILLIN [Concomitant]
     Active Substance: CLEMIZOLE PENICILLIN
     Indication: PRODUCT USED FOR UNKNOWN INDICATION
     Dosage: UNK
     Route: 064

REACTIONS (5)
  - Renal cyst [Not Recovered/Not Resolved]
  - Hypoacusis [Not Recovered/Not Resolved]
  - Congenital inguinal hernia [Recovered/Resolved]
  - Small for dates baby [Recovering/Resolving]
  - Foetal exposure during pregnancy [Unknown]

NARRATIVE: CASE EVENT DATE: 20180228
